FAERS Safety Report 7814367-5 (Version None)
Quarter: 2011Q4

REPORT INFORMATION
  Report Type: 
  Country: None (occurrence: None)
  Receive Date: 20111014
  Receipt Date: 20111003
  Transmission Date: 20120403
  Serious: Yes (Hospitalization, Other)
  Sender: FDA-Public Use
  Company Number: PHEH2011US02381

PATIENT
  Sex: Female

DRUGS (10)
  1. EXELON [Suspect]
     Indication: LUPUS ENTERITIS
     Dosage: 4.6 MG, 1 PATCH PER DAY
     Route: 062
  2. NASONEX [Concomitant]
  3. ASPIRIN [Concomitant]
     Dosage: 81 MG, UNK
  4. TENORMIN [Concomitant]
     Dosage: UNK UKN, UNK
  5. TEKTURNA [Concomitant]
     Dosage: UNK UKN, UNK
  6. SIMVASTATIN [Concomitant]
     Dosage: UNK UKN, UNK
  7. MOTRIN [Concomitant]
     Dosage: 800 MG, UNK
  8. ESTRACE [Concomitant]
     Dosage: UNK UKN, UNK
  9. PLAQUIN [Concomitant]
     Dosage: UNK UKN, UNK
  10. FLUOXETINE HCL [Suspect]
     Dosage: 40 MG, QD

REACTIONS (6)
  - TRANSIENT ISCHAEMIC ATTACK [None]
  - LOSS OF CONSCIOUSNESS [None]
  - ASTHENIA [None]
  - CEREBROVASCULAR ACCIDENT [None]
  - FEELING ABNORMAL [None]
  - BALANCE DISORDER [None]
